FAERS Safety Report 5735819-8 (Version None)
Quarter: 2008Q2

REPORT INFORMATION
  Report Type: 
  Country: None (occurrence: None)
  Receive Date: 20080508
  Receipt Date: 20080508
  Transmission Date: 20081010
  Serious: Yes (Other)
  Sender: FDA-Public Use
  Company Number: None

PATIENT
  Age: 50 Year
  Sex: Female
  Weight: 66.6788 kg

DRUGS (1)
  1. ISOVUE-370 [Suspect]
     Dosage: 125 CC
     Dates: start: 20070320, end: 20070320

REACTIONS (5)
  - IMMEDIATE POST-INJECTION REACTION [None]
  - LACRIMATION INCREASED [None]
  - PRURITUS [None]
  - SNEEZING [None]
  - THROAT TIGHTNESS [None]
